FAERS Safety Report 25532635 (Version 3)
Quarter: 2025Q3

REPORT INFORMATION
  Report Type: Spontaneous
  Country: ZA (occurrence: ZA)
  Receive Date: 20250709
  Receipt Date: 20250802
  Transmission Date: 20251021
  Serious: Yes (Life-Threatening, Hospitalization)
  Sender: HETERO
  Company Number: ZA-AMAROX PHARMA-HET2025ZA03642

PATIENT
  Sex: Female

DRUGS (1)
  1. FINGOLIMOD [Suspect]
     Active Substance: FINGOLIMOD
     Indication: Multiple sclerosis
     Route: 065

REACTIONS (3)
  - Guillain-Barre syndrome [Unknown]
  - Product availability issue [Unknown]
  - Product dose omission issue [Unknown]
